FAERS Safety Report 4945304-9 (Version None)
Quarter: 2006Q1

REPORT INFORMATION
  Report Type: 
  Country: None (occurrence: None)
  Receive Date: 20060315
  Receipt Date: 20060315
  Transmission Date: 20060701
  Serious: No
  Sender: FDA-Public Use
  Company Number: None

PATIENT
  Age: 81 Year
  Sex: Male
  Weight: 91 kg

DRUGS (5)
  1. MEMANTINE HCL [Suspect]
     Indication: DEMENTIA
     Dosage: 10 MG BID PO
     Route: 048
  2. RIVASTIGMINE [Concomitant]
  3. QUETIAPINE [Concomitant]
  4. VENLAFAXINE HCL [Concomitant]
  5. SIMVASTATIN [Concomitant]

REACTIONS (1)
  - SOMNOLENCE [None]
